FAERS Safety Report 6041514-0 (Version None)
Quarter: 2009Q1

REPORT INFORMATION
  Report Type: 
  Country: None (occurrence: None)
  Receive Date: 20090116
  Receipt Date: 20081021
  Transmission Date: 20090719
  Serious: Yes (Other)
  Sender: FDA-Public Use
  Company Number: US-BRISTOL-MYERS SQUIBB COMPANY-14378178

PATIENT
  Sex: Female

DRUGS (2)
  1. ABILIFY [Suspect]
     Indication: BIPOLAR DISORDER
     Dosage: INCREASED BY INCREMENTS OF 5MG UNTIL 20MG QD,CURRENTLY TAKING ABILIFY 7.5MG QD
     Dates: start: 20070601
  2. CONCERTA [Concomitant]

REACTIONS (1)
  - WEIGHT INCREASED [None]
